FAERS Safety Report 11031438 (Version 2)
Quarter: 2015Q2

REPORT INFORMATION
  Report Type: Spontaneous
  Country: US (occurrence: US)
  Receive Date: 20150415
  Receipt Date: 20150420
  Transmission Date: 20150821
  Serious: No
  Sender: FDA-Public Use
  Company Number: US-BAYER-2015-135283

PATIENT
  Sex: Female

DRUGS (1)
  1. LORATADINE. [Suspect]
     Active Substance: LORATADINE
     Indication: MULTIPLE ALLERGIES
     Dosage: UNK
     Route: 048

REACTIONS (1)
  - Drug ineffective [Unknown]
